FAERS Safety Report 21922099 (Version 1)
Quarter: 2023Q1

REPORT INFORMATION
  Report Type: Report from Study
  Country: ES (occurrence: ES)
  Receive Date: 20230128
  Receipt Date: 20230128
  Transmission Date: 20230418
  Serious: Yes (Other)
  Sender: FDA-Public Use
  Company Number: ES-CELLTRION INC.-2023ES001278

PATIENT

DRUGS (14)
  1. BEVACIZUMAB [Suspect]
     Active Substance: BEVACIZUMAB
     Indication: Lung cancer metastatic
     Dosage: 660 MG
     Dates: start: 20211109
  2. CARBOPLATIN [Suspect]
     Active Substance: CARBOPLATIN
     Indication: Lung cancer metastatic
     Dosage: 593 MG
     Dates: start: 20211109
  3. PACLITAXEL [Suspect]
     Active Substance: PACLITAXEL
     Indication: Lung cancer metastatic
     Dosage: 350 MG
     Dates: start: 20211109
  4. ATEZOLIZUMAB [Suspect]
     Active Substance: ATEZOLIZUMAB
     Indication: Lung cancer metastatic
     Dosage: ON 23/AUG/2022, MOST RECENT DOSE OF ATEZOLIZUMAB PRIOR TO AE (ADVERSE EVENT) WAS 1200 MG./ EVERY 3 W
     Route: 042
     Dates: start: 20211109
  5. ISONIAZID [Concomitant]
     Active Substance: ISONIAZID
     Dosage: UNK, QD
     Dates: start: 20210423
  6. FLECAINIDE [Concomitant]
     Active Substance: FLECAINIDE
     Dosage: EVERY 0.5 DAY
     Dates: start: 20210217
  7. TORSEMIDE [Concomitant]
     Active Substance: TORSEMIDE
     Dosage: EVERY 1 DAY
     Dates: start: 20150427
  8. ATORVASTATIN [Concomitant]
     Active Substance: ATORVASTATIN
     Dosage: EVERY 1 DAY
     Dates: start: 20171004
  9. APIXABAN [Concomitant]
     Active Substance: APIXABAN
     Dosage: EVERY 0.5 DAY
     Dates: start: 20210217
  10. AMLODIPINE BESYLATE\VALSARTAN [Concomitant]
     Active Substance: AMLODIPINE BESYLATE\VALSARTAN
     Dosage: EVERY 1 DAY
     Dates: start: 20111220
  11. IXEKIZUMAB [Concomitant]
     Active Substance: IXEKIZUMAB
     Dosage: EVERY 1 MONTH
     Dates: start: 20220207, end: 20220420
  12. BEMIPARIN [Concomitant]
     Active Substance: BEMIPARIN
     Dosage: EVERY 1 DAY
     Dates: start: 20210927
  13. LANSOPRAZOLE [Concomitant]
     Active Substance: LANSOPRAZOLE
     Dosage: EVERY 1 DAY
     Dates: start: 20171004
  14. ATARAX [Concomitant]
     Active Substance: HYDROXYZINE HYDROCHLORIDE
     Indication: Prophylaxis
     Dosage: EVERY 0.33 DAY
     Dates: start: 20220328

REACTIONS (4)
  - Neurotoxicity [Recovered/Resolved]
  - Psoriasis [Not Recovered/Not Resolved]
  - Arthralgia [Not Recovered/Not Resolved]
  - Underdose [Unknown]

NARRATIVE: CASE EVENT DATE: 20220117
